FAERS Safety Report 14562760 (Version 2)
Quarter: 2018Q3

REPORT INFORMATION
  Report Type: Spontaneous
  Country: US (occurrence: US)
  Receive Date: 20180222
  Receipt Date: 20180911
  Transmission Date: 20181010
  Serious: Yes (Other)
  Sender: FDA-Public Use
  Company Number: US-JNJFOC-20180228753

PATIENT
  Age: 58 Year
  Sex: Female

DRUGS (2)
  1. IMBRUVICA [Suspect]
     Active Substance: IBRUTINIB
     Indication: CHRONIC LYMPHOCYTIC LEUKAEMIA
     Route: 065
  2. VENCLEXTA [Suspect]
     Active Substance: VENETOCLAX
     Indication: CHRONIC LYMPHOCYTIC LEUKAEMIA
     Route: 065

REACTIONS (15)
  - Gingival recession [Unknown]
  - Mucosal dryness [Not Recovered/Not Resolved]
  - Blood pressure decreased [Recovering/Resolving]
  - Dizziness [Recovering/Resolving]
  - Platelet count decreased [Not Recovered/Not Resolved]
  - Myalgia [Recovering/Resolving]
  - Influenza [Recovering/Resolving]
  - Alopecia [Not Recovered/Not Resolved]
  - Thyroid disorder [Recovering/Resolving]
  - Drug hypersensitivity [Unknown]
  - Deafness neurosensory [Not Recovered/Not Resolved]
  - Dry mouth [Not Recovered/Not Resolved]
  - Red blood cell count decreased [Not Recovered/Not Resolved]
  - Asthenia [Not Recovered/Not Resolved]
  - Migraine [Recovered/Resolved]

NARRATIVE: CASE EVENT DATE: 20171225
